FAERS Safety Report 21638424 (Version 1)
Quarter: 2022Q4

REPORT INFORMATION
  Report Type: Spontaneous
  Country: NO (occurrence: NO)
  Receive Date: 20221124
  Receipt Date: 20221124
  Transmission Date: 20230113
  Serious: Yes (Death, Life-Threatening, Hospitalization)
  Sender: FDA-Public Use
  Company Number: None

PATIENT
  Age: 78 Year
  Sex: Female

DRUGS (12)
  1. SOLU-MEDROL [Suspect]
     Active Substance: METHYLPREDNISOLONE SODIUM SUCCINATE
     Indication: Drug-induced liver injury
     Dosage: 40MG 2X/DAY; FREQUENCY 12HOURS
  2. PROGRAF [Suspect]
     Active Substance: TACROLIMUS
     Indication: Drug-induced liver injury
     Dosage: 3.5 MG X 2, LATER 2.5 MG X 2
     Dates: start: 20221024, end: 20221111
  3. MYCOPHENOLATE MOFETIL [Suspect]
     Active Substance: MYCOPHENOLATE MOFETIL
     Indication: Drug-induced liver injury
     Dosage: 1 GRAM  X 2, LATER 1 GRAM X 3
     Dates: end: 20221029
  4. GANCICLOVIR [Suspect]
     Active Substance: GANCICLOVIR
     Indication: Cytomegalovirus hepatitis
     Dosage: 330MG 2X/DAY; FREQUENCY: 12HOURS
     Dates: start: 20221102, end: 20221111
  5. DETREMIN [Concomitant]
  6. KABIVEN [Concomitant]
     Active Substance: AMINO ACIDS\ANHYDROUS DEXTROSE\CALCIUM CHLORIDE\MAGNESIUM SULFATE HEPTAHYDRATE\POTASSIUM CHLORIDE\SO
  7. IMOVANE [Concomitant]
     Active Substance: ZOPICLONE
  8. NEXIUM I.V. [Concomitant]
     Active Substance: ESOMEPRAZOLE SODIUM
  9. SCHERIPROCT [CINCHOCAINE HYDROCHLORIDE;PREDNISOLONE CAPROATE] [Concomitant]
  10. METOPROLOL SUCCINATE [Concomitant]
     Active Substance: METOPROLOL SUCCINATE
  11. VAGIFEM [Concomitant]
     Active Substance: ESTRADIOL
  12. AMITRIPTYLINE HYDROCHLORIDE [Concomitant]
     Active Substance: AMITRIPTYLINE HYDROCHLORIDE

REACTIONS (6)
  - Hypernatraemia [Fatal]
  - Staphylococcal sepsis [Fatal]
  - Hyperglycaemic hyperosmolar nonketotic syndrome [Fatal]
  - Metabolic acidosis [Fatal]
  - Fungal sepsis [Fatal]
  - Cytomegalovirus hepatitis [Fatal]
